FAERS Safety Report 13580391 (Version 1)
Quarter: 2017Q2

REPORT INFORMATION
  Report Type: Spontaneous
  Country: None (occurrence: US)
  Receive Date: 20170524
  Receipt Date: 20170524
  Transmission Date: 20170830
  Serious: Yes (Hospitalization)
  Sender: FDA-Public Use
  Company Number: None

PATIENT
  Age: 46 Year
  Sex: Male

DRUGS (1)
  1. DABIGATRAN [Suspect]
     Active Substance: DABIGATRAN
     Indication: PULMONARY EMBOLISM
     Route: 048
     Dates: start: 20170428, end: 20170523

REACTIONS (4)
  - Haemoptysis [None]
  - Hypertensive emergency [None]
  - Melaena [None]
  - Pulmonary embolism [None]

NARRATIVE: CASE EVENT DATE: 20170510
